FAERS Safety Report 24432298 (Version 3)
Quarter: 2024Q4

REPORT INFORMATION
  Report Type: Spontaneous
  Country: US (occurrence: US)
  Receive Date: 20241014
  Receipt Date: 20241029
  Transmission Date: 20250115
  Serious: Yes (Hospitalization, Other)
  Sender: ALEXION PHARMACEUTICALS
  Company Number: US-AstraZeneca-CH-00716796A

PATIENT

DRUGS (8)
  1. TRUQAP [Suspect]
     Active Substance: CAPIVASERTIB
     Indication: HER2 low breast cancer
     Dosage: 400 MILLIGRAM, INTERMITTENT
  2. TRUQAP [Suspect]
     Active Substance: CAPIVASERTIB
     Dosage: 400 MILLIGRAM, INTERMITTENT
  3. TRUQAP [Suspect]
     Active Substance: CAPIVASERTIB
     Dosage: 400 MILLIGRAM, INTERMITTENT
  4. TRUQAP [Suspect]
     Active Substance: CAPIVASERTIB
     Dosage: 400 MILLIGRAM, INTERMITTENT
  5. TRUQAP [Suspect]
     Active Substance: CAPIVASERTIB
     Dosage: RESUMED AT HALF DOSE
  6. TRUQAP [Suspect]
     Active Substance: CAPIVASERTIB
     Dosage: RESUMED AT HALF DOSE
  7. TRUQAP [Suspect]
     Active Substance: CAPIVASERTIB
     Dosage: RESUMED AT HALF DOSE
  8. TRUQAP [Suspect]
     Active Substance: CAPIVASERTIB
     Dosage: RESUMED AT HALF DOSE

REACTIONS (9)
  - Hypersensitivity [Recovered/Resolved]
  - Vomiting [Recovered/Resolved]
  - Nausea [Unknown]
  - Pyrexia [Recovered/Resolved]
  - Chills [Recovered/Resolved]
  - Tachycardia [Recovered/Resolved]
  - Rash [Recovered/Resolved]
  - Rash papular [Recovered/Resolved]
  - Diarrhoea [Recovered/Resolved]
